FAERS Safety Report 8341854-6 (Version None)
Quarter: 2012Q2

REPORT INFORMATION
  Report Type: 
  Country: None (occurrence: None)
  Receive Date: 20120507
  Receipt Date: 20120501
  Transmission Date: 20120825
  Serious: Yes (Hospitalization)
  Sender: FDA-Public Use
  Company Number: JP-ROXANE LABORATORIES, INC.-2012-RO-01159RO

PATIENT
  Age: 63 Year
  Sex: Female

DRUGS (3)
  1. IMMUNE GLOBULIN NOS [Suspect]
     Indication: DERMATOMYOSITIS
     Route: 042
  2. STEROID PULSE THERAPY [Concomitant]
     Indication: DERMATOMYOSITIS
  3. CYCLOPHOSPHAMIDE [Suspect]
     Indication: DERMATOMYOSITIS

REACTIONS (2)
  - GASTRIC ULCER [None]
  - CYTOMEGALOVIRUS INFECTION [None]
